FAERS Safety Report 20655511 (Version 1)
Quarter: 2022Q1

REPORT INFORMATION
  Report Type: Report from Study
  Country: BR (occurrence: BR)
  Receive Date: 20220330
  Receipt Date: 20220330
  Transmission Date: 20220423
  Serious: Yes (Other)
  Sender: FDA-Public Use
  Company Number: BR-NOVARTISPH-NVSC2021BR130118

PATIENT
  Age: 75 Year
  Sex: Female

DRUGS (4)
  1. COSENTYX [Suspect]
     Active Substance: SECUKINUMAB
     Indication: Psoriatic arthropathy
     Dosage: 300 MG (ATTACK DOSES)
     Route: 065
  2. COSENTYX [Suspect]
     Active Substance: SECUKINUMAB
     Dosage: 150 MG (ATTACK DOSES)
     Route: 065
     Dates: start: 20210528
  3. COSENTYX [Suspect]
     Active Substance: SECUKINUMAB
     Dosage: 300 MG
     Route: 065
     Dates: start: 20210423
  4. COSENTYX [Suspect]
     Active Substance: SECUKINUMAB
     Dosage: UNK
     Route: 065
     Dates: start: 20220215

REACTIONS (14)
  - Nephrolithiasis [Unknown]
  - Vision blurred [Unknown]
  - Skin plaque [Unknown]
  - Renal disorder [Unknown]
  - Rebound effect [Unknown]
  - Hypersensitivity [Unknown]
  - Skin hypertrophy [Recovered/Resolved]
  - Infection [Unknown]
  - Skin exfoliation [Recovered/Resolved]
  - Dandruff [Recovered/Resolved]
  - Pruritus [Unknown]
  - Erythema [Recovered/Resolved]
  - Alopecia [Recovered/Resolved]
  - Dysuria [Unknown]

NARRATIVE: CASE EVENT DATE: 20220316
